FAERS Safety Report 8321242-9 (Version None)
Quarter: 2012Q2

REPORT INFORMATION
  Report Type: 
  Country: None (occurrence: None)
  Receive Date: 20120430
  Receipt Date: 20120419
  Transmission Date: 20120825
  Serious: Yes (Other)
  Sender: FDA-Public Use
  Company Number: US-BRISTOL-MYERS SQUIBB COMPANY-16539413

PATIENT
  Age: 5 Decade
  Sex: Female

DRUGS (2)
  1. TAMOXIFEN CITRATE [Concomitant]
     Indication: BREAST CANCER
  2. YERVOY [Suspect]
     Indication: MALIGNANT MELANOMA
     Dosage: NO OF INF:4

REACTIONS (1)
  - NAUSEA [None]
